FAERS Safety Report 8035723-9 (Version None)
Quarter: 2012Q1

REPORT INFORMATION
  Report Type: 
  Country: None (occurrence: None)
  Receive Date: 20120111
  Receipt Date: 20120111
  Transmission Date: 20120608
  Serious: Yes (Other)
  Sender: FDA-Public Use
  Company Number: US-JNJFOC-20120102681

PATIENT
  Sex: Female
  Weight: 78.47 kg

DRUGS (1)
  1. ELMIRON [Suspect]
     Indication: BLADDER PAIN
     Route: 048
     Dates: start: 20111001, end: 20111101

REACTIONS (9)
  - SECRETION DISCHARGE [None]
  - PAIN [None]
  - INFECTION [None]
  - NAUSEA [None]
  - WEIGHT DECREASED [None]
  - DECREASED APPETITE [None]
  - PROTEIN URINE PRESENT [None]
  - VOMITING [None]
  - GLUCOSE URINE PRESENT [None]
